FAERS Safety Report 8266750 (Version 6)
Quarter: 2013Q1

REPORT INFORMATION
  Report Type: Spontaneous
  Country: US (occurrence: None)
  Receive Date: 20111121
  Receipt Date: 20121207
  Transmission Date: 20140127
  Serious: Yes (Other)
  Sender: FDA-Public Use
  Company Number: 2011029936

PATIENT
  Age: 59 Year
  Sex: Female
  Weight: 136.53 kg

DRUGS (11)
  1. HIZENTRA [Suspect]
     Indication: IMMUNODEFICIENCY COMMON VARIABLE
     Dosage: 17 G 1X/WEEK, 1 GM 5 ML VIAL; 85 ML WEEKLY IN 4-6 SITES OVER 2-2.5 HOURS SUBCUTANEOUS
     Route: 058
     Dates: start: 20110928
  2. SINGULAIR [Concomitant]
  3. EFFEXOR (VENLAFAXINE) [Concomitant]
  4. ALDACTONE [Concomitant]
  5. LASIX (FUROSEMIDE) [Concomitant]
  6. LOSARTAN POTASSIUM [Concomitant]
  7. NEURONTIN [Concomitant]
  8. KLOR-CON [Concomitant]
  9. OMEPRAZOLE (OMEPRAZOLE) [Concomitant]
  10. DICLOFENAC SODIUM [Concomitant]
  11. ZETIA (EZETIMIBE) [Concomitant]

REACTIONS (7)
  - Infusion site pruritus [None]
  - Musculoskeletal stiffness [None]
  - Urinary tract infection [None]
  - Injury [None]
  - Arthralgia [None]
  - Thrombosis [None]
  - Pain [None]
